FAERS Safety Report 9776224 (Version 4)
Quarter: 2015Q1

REPORT INFORMATION
  Report Type: Spontaneous
  Country: FR (occurrence: FR)
  Receive Date: 20131220
  Receipt Date: 20150113
  Transmission Date: 20150721
  Serious: Yes (Disabling, Congenital Anomaly, Other)
  Sender: FDA-Public Use
  Company Number: FR-ABBVIE-13P-056-1181128-00

PATIENT
  Sex: Female

DRUGS (1)
  1. DEPAKINE [Suspect]
     Active Substance: VALPROATE SODIUM
     Indication: MATERNAL EXPOSURE TIMING UNSPECIFIED
     Route: 064

REACTIONS (28)
  - Humerus fracture [Unknown]
  - Premature baby [Unknown]
  - Congenital eyelid malformation [Unknown]
  - Blood growth hormone abnormal [Unknown]
  - Foot deformity [Unknown]
  - Autism spectrum disorder [Unknown]
  - Dysmorphism [Unknown]
  - Hypertelorism of orbit [Unknown]
  - Growth retardation [Unknown]
  - Anxiety [Recovering/Resolving]
  - Growth retardation [Unknown]
  - Abnormal behaviour [Unknown]
  - Eczema [Unknown]
  - Pupillary reflex impaired [Unknown]
  - Psychomotor retardation [Unknown]
  - Congenital anomaly [Unknown]
  - Congenital hearing disorder [Unknown]
  - Intentional self-injury [Unknown]
  - Foetal exposure during pregnancy [Unknown]
  - Cognitive disorder [Unknown]
  - Hypotonia neonatal [Unknown]
  - Fear [Recovering/Resolving]
  - Microcephaly [Unknown]
  - Disturbance in attention [Unknown]
  - Respiratory distress [Recovered/Resolved]
  - Self-induced vomiting [Unknown]
  - Pica [Unknown]
  - Mental retardation [Unknown]

NARRATIVE: CASE EVENT DATE: 201010
